FAERS Safety Report 8150840-0 (Version None)
Quarter: 2012Q1

REPORT INFORMATION
  Report Type: 
  Country: None (occurrence: None)
  Receive Date: 20120220
  Receipt Date: 20120207
  Transmission Date: 20120608
  Serious: Yes (Other)
  Sender: FDA-Public Use
  Company Number: US-ELI_LILLY_AND_COMPANY-US201202002701

PATIENT
  Age: 57 Year
  Sex: Male

DRUGS (2)
  1. CYMBALTA [Suspect]
     Indication: NOREPINEPHRINE DECREASED
     Dosage: UNK, QD
  2. L-DOPA [Concomitant]
     Indication: NOREPINEPHRINE DECREASED
     Dosage: UNK

REACTIONS (5)
  - WEIGHT INCREASED [None]
  - HYPERTENSION [None]
  - PARAESTHESIA [None]
  - RETINAL TEAR [None]
  - OFF LABEL USE [None]
